FAERS Safety Report 9939125 (Version 1)
Quarter: 2014Q1

REPORT INFORMATION
  Report Type: Report from Study
  Country: US (occurrence: US)
  Receive Date: 20140303
  Receipt Date: 20140303
  Transmission Date: 20141002
  Serious: No
  Sender: FDA-Public Use
  Company Number: US-ABBVIE-13P-163-1035828-00

PATIENT
  Age: 42 Year
  Sex: Female

DRUGS (4)
  1. HUMIRA [Suspect]
     Indication: ANKYLOSING SPONDYLITIS
     Dates: start: 20121231
  2. NABERUNBETONE [Concomitant]
     Indication: ANTIINFLAMMATORY THERAPY
  3. TRAMADOL [Concomitant]
     Indication: PAIN
     Dosage: AS NEEDED (NOT TAKEN OFTEN)
  4. LANSOPRAZOLE [Concomitant]
     Indication: GASTROOESOPHAGEAL REFLUX DISEASE

REACTIONS (1)
  - Influenza [Recovered/Resolved]
